FAERS Safety Report 9601723 (Version 1)
Quarter: 2013Q4

REPORT INFORMATION
  Report Type: Spontaneous
  Country: ES (occurrence: None)
  Receive Date: 20131002
  Receipt Date: 20131002
  Transmission Date: 20140711
  Serious: Yes (Hospitalization, Other)
  Sender: FDA-Public Use
  Company Number: ABR_01135_2013

PATIENT
  Age: 50 Year
  Sex: Female

DRUGS (3)
  1. LAMOTRIGINE [Suspect]
     Indication: EPILEPSY
     Dosage: 1 WEEK 1 DAY?1X/12 HOURS
  2. METAMIZOLE (METAMIZOLE) [Suspect]
     Indication: PRODUCT USED FOR UNKNOWN INDICATION
     Dosage: 1X/6 HOURS
  3. IBUPROFEN [Suspect]
     Indication: PRODUCT USED FOR UNKNOWN INDICATION
     Dosage: 1X/8 HOURS

REACTIONS (9)
  - Stevens-Johnson syndrome [None]
  - Conjunctival haemorrhage [None]
  - Corneal erosion [None]
  - Trichiasis [None]
  - Punctate keratitis [None]
  - Post procedural complication [None]
  - Swollen tongue [None]
  - Tongue disorder [None]
  - Ulcer [None]
